FAERS Safety Report 16744168 (Version 1)
Quarter: 2019Q3

REPORT INFORMATION
  Report Type: Spontaneous
  Country: DE (occurrence: DE)
  Receive Date: 20190827
  Receipt Date: 20190827
  Transmission Date: 20191005
  Serious: Yes (Disabling, Other)
  Sender: FDA-Public Use
  Company Number: PHHY2019DE194316

PATIENT
  Age: 53 Year
  Sex: Female

DRUGS (4)
  1. CANDESARTAN HEUMANN [Concomitant]
     Active Substance: CANDESARTAN CILEXETIL
     Indication: HYPERTENSION
     Dosage: UNK
     Route: 048
  2. L-THYROX HEXAL [Concomitant]
     Active Substance: LEVOTHYROXINE SODIUM
     Indication: HYPOTHYROIDISM
     Dosage: 125 UG, UNK
     Route: 048
  3. CLINDAHEXAL [Suspect]
     Active Substance: CLINDAMYCIN HYDROCHLORIDE
     Indication: INFLUENZA LIKE ILLNESS
     Dosage: 600 MG, Q8H
     Route: 048
     Dates: start: 20180409, end: 20190415
  4. IBUPROFEN. [Concomitant]
     Active Substance: IBUPROFEN
     Indication: INFLUENZA LIKE ILLNESS
     Dosage: UNK
     Route: 048

REACTIONS (15)
  - Endometritis [Unknown]
  - Lactose intolerance [Unknown]
  - Chronic gastritis [Not Recovered/Not Resolved]
  - Enteritis [Not Recovered/Not Resolved]
  - Stomatitis [Unknown]
  - Drug intolerance [Unknown]
  - Weight decreased [Recovered/Resolved]
  - Abdominal pain upper [Not Recovered/Not Resolved]
  - Diarrhoea haemorrhagic [Unknown]
  - Gastrointestinal pain [Not Recovered/Not Resolved]
  - Irritable bowel syndrome [Not Recovered/Not Resolved]
  - Food intolerance [Unknown]
  - Clostridium difficile infection [Unknown]
  - Flatulence [Not Recovered/Not Resolved]
  - Fructose intolerance [Unknown]

NARRATIVE: CASE EVENT DATE: 201804
